FAERS Safety Report 4980800-X (Version None)
Quarter: 2006Q2

REPORT INFORMATION
  Report Type: 
  Country: None (occurrence: None)
  Receive Date: 20060424
  Receipt Date: 20051104
  Transmission Date: 20061013
  Serious: Yes (Hospitalization)
  Sender: FDA-Public Use
  Company Number: US-MERCK-0511USA01079

PATIENT
  Age: 57 Year
  Sex: Female

DRUGS (1)
  1. VIOXX [Suspect]
     Indication: ARTHRALGIA
     Route: 048
     Dates: start: 20000110, end: 20000101

REACTIONS (28)
  - ANGINA UNSTABLE [None]
  - AORTIC ANEURYSM [None]
  - AORTIC DILATATION [None]
  - AORTIC VALVE INCOMPETENCE [None]
  - BLISTER [None]
  - CARPAL TUNNEL SYNDROME [None]
  - CEREBROVASCULAR ACCIDENT [None]
  - CHEST PAIN [None]
  - CORONARY ARTERY DISEASE [None]
  - CORONARY ARTERY STENOSIS [None]
  - DRUG INEFFECTIVE [None]
  - DYSPEPSIA [None]
  - ELECTROCARDIOGRAM ST-T CHANGE [None]
  - GAIT DISTURBANCE [None]
  - GLAUCOMA [None]
  - HEADACHE [None]
  - MUSCULOSKELETAL CHEST PAIN [None]
  - MYOCARDIAL INFARCTION [None]
  - NOCTURIA [None]
  - ORGAN FAILURE [None]
  - OSTEOARTHRITIS [None]
  - POLLAKIURIA [None]
  - PULMONARY EMBOLISM [None]
  - RADICULOPATHY [None]
  - SCIATICA [None]
  - SINUS BRADYCARDIA [None]
  - SPINAL OSTEOARTHRITIS [None]
  - THROMBOSIS [None]
